FAERS Safety Report 20656663 (Version 1)
Quarter: 2022Q1

REPORT INFORMATION
  Report Type: Other
  Country: US (occurrence: None)
  Receive Date: 20220331
  Receipt Date: 20220331
  Transmission Date: 20220424
  Serious: Yes (Other)
  Sender: FDA-Public Use
  Company Number: US-ROCHE-3059609

PATIENT
  Sex: Female

DRUGS (1)
  1. OCREVUS [Suspect]
     Active Substance: OCRELIZUMAB
     Indication: Multiple sclerosis
     Dosage: INITIALLY 300 MG DAY 1 AND DAY 15; DATE OF TREATMENT: 03/JAN/2020, 06/JUL/2021
     Route: 065
     Dates: start: 20170621

REACTIONS (1)
  - Pneumonia [Unknown]
